FAERS Safety Report 5627754-0 (Version None)
Quarter: 2008Q1

REPORT INFORMATION
  Report Type: 
  Country: None (occurrence: None)
  Receive Date: 20080215
  Receipt Date: 20080211
  Transmission Date: 20080703
  Serious: Yes (Other)
  Sender: FDA-Public Use
  Company Number: A0708728A

PATIENT
  Sex: Male

DRUGS (6)
  1. MALARONE [Suspect]
     Indication: DRUG USE FOR UNKNOWN INDICATION
     Route: 048
  2. ALCOHOL [Suspect]
  3. AMBIEN [Suspect]
  4. PROZAC [Concomitant]
  5. SEROQUEL [Concomitant]
  6. MINOCYCLINE HCL [Concomitant]

REACTIONS (4)
  - AGGRESSION [None]
  - ALCOHOL INTERACTION [None]
  - DRUG INTERACTION [None]
  - MEMORY IMPAIRMENT [None]
